FAERS Safety Report 17492312 (Version 2)
Quarter: 2020Q2

REPORT INFORMATION
  Report Type: Spontaneous
  Country: US (occurrence: US)
  Receive Date: 20200304
  Receipt Date: 20200521
  Transmission Date: 20200713
  Serious: Yes (Other)
  Sender: FDA-Public Use
  Company Number: US-ASTRAZENECA-2020SE30389

PATIENT
  Age: 14599 Day
  Sex: Female
  Weight: 59.9 kg

DRUGS (33)
  1. NEXIUM 24HR [Suspect]
     Active Substance: ESOMEPRAZOLE MAGNESIUM
     Indication: GASTROOESOPHAGEAL REFLUX DISEASE
     Route: 048
     Dates: start: 200403, end: 2019
  2. PRILOSEC [Suspect]
     Active Substance: OMEPRAZOLE MAGNESIUM
     Indication: GASTROOESOPHAGEAL REFLUX DISEASE
     Dosage: OMEPRAZOLE
     Route: 065
     Dates: start: 200001
  3. PRILOSEC [Suspect]
     Active Substance: OMEPRAZOLE MAGNESIUM
     Indication: GASTROOESOPHAGEAL REFLUX DISEASE
     Dosage: OMEPRAZOLE
     Route: 065
     Dates: start: 2012, end: 2019
  4. PROTONIX [Suspect]
     Active Substance: PANTOPRAZOLE SODIUM
     Indication: GASTROOESOPHAGEAL REFLUX DISEASE
     Dosage: GENERIC
     Route: 065
     Dates: start: 200001
  5. PREVACID [Suspect]
     Active Substance: LANSOPRAZOLE
     Dosage: GENERIC
     Route: 065
     Dates: start: 200001
  6. PEPCID [Concomitant]
     Active Substance: FAMOTIDINE
     Dosage: FAMOTIDINE (PRESCRIPTION)
     Route: 065
     Dates: start: 2008, end: 2019
  7. PEPCID [Concomitant]
     Active Substance: FAMOTIDINE
     Dosage: FAMOTIDINE (OTC)
     Route: 065
     Dates: start: 2008, end: 2019
  8. LEVOTHYROXINE. [Concomitant]
     Active Substance: LEVOTHYROXINE
  9. PRILOSEC [Suspect]
     Active Substance: OMEPRAZOLE MAGNESIUM
     Indication: GASTROOESOPHAGEAL REFLUX DISEASE
     Route: 048
     Dates: start: 200001
  10. PROTONIX [Suspect]
     Active Substance: PANTOPRAZOLE SODIUM
     Indication: GASTROOESOPHAGEAL REFLUX DISEASE
     Dosage: GENERIC
     Route: 065
     Dates: start: 2018, end: 2019
  11. PEPCID [Concomitant]
     Active Substance: FAMOTIDINE
     Dosage: GENERIC FAMOTIDINE
     Route: 065
     Dates: start: 2008, end: 2013
  12. OXYCODONE [Concomitant]
     Active Substance: OXYCODONE
  13. NEXIUM 24HR [Suspect]
     Active Substance: ESOMEPRAZOLE MAGNESIUM
     Indication: GASTROOESOPHAGEAL REFLUX DISEASE
     Route: 048
     Dates: start: 2004, end: 2018
  14. PRILOSEC [Suspect]
     Active Substance: OMEPRAZOLE MAGNESIUM
     Indication: GASTROOESOPHAGEAL REFLUX DISEASE
     Route: 048
     Dates: start: 2004, end: 2018
  15. PEPCID [Concomitant]
     Active Substance: FAMOTIDINE
     Dosage: AC (OTC)
     Route: 065
     Dates: start: 2008, end: 2019
  16. PEPCID [Concomitant]
     Active Substance: FAMOTIDINE
     Dosage: COMPLETE (OTC)
     Route: 065
     Dates: start: 2008, end: 2019
  17. NEXIUM [Suspect]
     Active Substance: ESOMEPRAZOLE MAGNESIUM
     Dosage: GENERIC
     Route: 065
     Dates: start: 200001
  18. DIAZEPAM. [Concomitant]
     Active Substance: DIAZEPAM
  19. PROCHLORPERAZINE. [Concomitant]
     Active Substance: PROCHLORPERAZINE
  20. CEPHALEXIN. [Concomitant]
     Active Substance: CEPHALEXIN
  21. CLINDAMYCIN. [Concomitant]
     Active Substance: CLINDAMYCIN
  22. DICYCLOMINE [Concomitant]
     Active Substance: DICYCLOMINE HYDROCHLORIDE
  23. NEXIUM [Suspect]
     Active Substance: ESOMEPRAZOLE MAGNESIUM
     Route: 048
     Dates: start: 200001
  24. ZANTAC [Concomitant]
     Active Substance: RANITIDINE HYDROCHLORIDE
     Dosage: 150 (OTC)
     Route: 065
     Dates: start: 2008, end: 2013
  25. ZANTAC [Concomitant]
     Active Substance: RANITIDINE HYDROCHLORIDE
     Dosage: GENERIC RANITIDINE
     Route: 065
     Dates: start: 2008, end: 2013
  26. CYCLOBENZAPRINE. [Concomitant]
     Active Substance: CYCLOBENZAPRINE
  27. BENZONATATE. [Concomitant]
     Active Substance: BENZONATATE
  28. ONDANSETRON [Concomitant]
     Active Substance: ONDANSETRON
  29. PROTONIX [Suspect]
     Active Substance: PANTOPRAZOLE SODIUM
     Indication: GASTROOESOPHAGEAL REFLUX DISEASE
     Route: 065
     Dates: start: 200001
  30. PREVACID [Suspect]
     Active Substance: LANSOPRAZOLE
     Route: 065
     Dates: start: 200001
  31. ZANTAC [Concomitant]
     Active Substance: RANITIDINE HYDROCHLORIDE
     Dosage: 150 (PRESCRIPTION)
     Route: 065
     Dates: start: 2008, end: 2013
  32. MOMETASONE [Concomitant]
     Active Substance: MOMETASONE
  33. CEFDINIR. [Concomitant]
     Active Substance: CEFDINIR

REACTIONS (3)
  - Depression [Unknown]
  - Adenocarcinoma gastric [Not Recovered/Not Resolved]
  - Anxiety disorder [Unknown]

NARRATIVE: CASE EVENT DATE: 20170526
